FAERS Safety Report 13364115 (Version 1)
Quarter: 2017Q1

REPORT INFORMATION
  Report Type: Spontaneous
  Country: US (occurrence: US)
  Receive Date: 20170323
  Receipt Date: 20170323
  Transmission Date: 20170429
  Serious: No
  Sender: FDA-Public Use
  Company Number: US-ROCHE-1329920

PATIENT
  Age: 43 Year
  Sex: Male

DRUGS (2)
  1. XOLAIR [Suspect]
     Active Substance: OMALIZUMAB
     Indication: ASTHMA
  2. XOLAIR [Suspect]
     Active Substance: OMALIZUMAB
     Indication: HYPERSENSITIVITY
     Route: 065
     Dates: start: 20140102

REACTIONS (3)
  - Dysgeusia [Recovered/Resolved]
  - Influenza [Not Recovered/Not Resolved]
  - Parosmia [Recovering/Resolving]

NARRATIVE: CASE EVENT DATE: 20140102
